FAERS Safety Report 25329731 (Version 2)
Quarter: 2025Q2

REPORT INFORMATION
  Report Type: Spontaneous
  Country: US (occurrence: US)
  Receive Date: 20250519
  Receipt Date: 20250605
  Transmission Date: 20250716
  Serious: No
  Sender: DR REDDYS
  Company Number: US-DRL-USA-USA/2025/05/006843

PATIENT

DRUGS (1)
  1. ACCUTANE [Suspect]
     Active Substance: ISOTRETINOIN
     Indication: Hidradenitis
     Route: 048
     Dates: start: 20250320

REACTIONS (4)
  - Dry skin [Unknown]
  - Pruritus [Unknown]
  - Skin hyperpigmentation [Unknown]
  - Drug ineffective for unapproved indication [Unknown]
